FAERS Safety Report 8140236-X (Version None)
Quarter: 2012Q1

REPORT INFORMATION
  Report Type: 
  Country: None (occurrence: None)
  Receive Date: 20120216
  Receipt Date: 20120206
  Transmission Date: 20120608
  Serious: No
  Sender: FDA-Public Use
  Company Number: US-BIOGENIDEC-2012BI004684

PATIENT
  Sex: Female

DRUGS (3)
  1. TYSABRI [Concomitant]
     Indication: MULTIPLE SCLEROSIS
     Route: 042
     Dates: start: 20090319, end: 20090514
  2. AVONEX [Suspect]
     Route: 030
     Dates: start: 20090615
  3. AVONEX [Suspect]
     Indication: MULTIPLE SCLEROSIS
     Route: 030
     Dates: start: 20010201, end: 20090217

REACTIONS (3)
  - MUSCLE SPASMS [None]
  - DRUG INTOLERANCE [None]
  - GAIT DISTURBANCE [None]
